FAERS Safety Report 11272725 (Version 2)
Quarter: 2015Q3

REPORT INFORMATION
  Report Type: Report from Study
  Country: AR (occurrence: AR)
  Receive Date: 20150715
  Receipt Date: 20150730
  Transmission Date: 20151125
  Serious: Yes (Life-Threatening)
  Sender: FDA-Public Use
  Company Number: PHHY2015AR081931

PATIENT
  Sex: Female

DRUGS (2)
  1. DIOVAN [Suspect]
     Active Substance: VALSARTAN
     Indication: HYPERTENSION
     Dosage: 80 OT, BID
     Route: 065
     Dates: start: 2014
  2. EXFORGE [Suspect]
     Active Substance: AMLODIPINE BESYLATE\VALSARTAN
     Indication: HYPERTENSION
     Dosage: 1 DF (160/5), QD
     Route: 065
     Dates: start: 2013, end: 2014

REACTIONS (9)
  - Depressed mood [Recovering/Resolving]
  - Hypersensitivity [Recovering/Resolving]
  - Feeling of despair [Recovering/Resolving]
  - Nervousness [Recovering/Resolving]
  - Fear [Recovering/Resolving]
  - Rash [Recovering/Resolving]
  - Hypotension [Recovering/Resolving]
  - Visual impairment [Recovering/Resolving]
  - Apparent death [Recovering/Resolving]

NARRATIVE: CASE EVENT DATE: 2014
